FAERS Safety Report 7544874-4 (Version None)
Quarter: 2011Q2

REPORT INFORMATION
  Report Type: 
  Country: None (occurrence: None)
  Receive Date: 20110614
  Receipt Date: 20110601
  Transmission Date: 20111010
  Serious: Yes (Hospitalization, Other)
  Sender: FDA-Public Use
  Company Number: DE-BAYER-2011-048601

PATIENT
  Age: 28 Year
  Sex: Female

DRUGS (1)
  1. MIRENA [Suspect]
     Dosage: UNK
     Dates: start: 20080101

REACTIONS (27)
  - VAGINAL HAEMORRHAGE [None]
  - CONSTIPATION [None]
  - SLEEP DISORDER [None]
  - NAUSEA [None]
  - COLD SWEAT [None]
  - OVARIAN CYST [None]
  - DYSGEUSIA [None]
  - DRY SKIN [None]
  - WEIGHT INCREASED [None]
  - FATIGUE [None]
  - DIZZINESS [None]
  - HIRSUTISM [None]
  - HYPERTENSION [None]
  - HYPERPROLACTINAEMIA [None]
  - TACHYCARDIA [None]
  - GALACTORRHOEA [None]
  - CYSTITIS NONINFECTIVE [None]
  - MOOD SWINGS [None]
  - MENORRHAGIA [None]
  - ACNE [None]
  - ARRHYTHMIA [None]
  - ALOPECIA [None]
  - VAGINAL DISCHARGE [None]
  - GINGIVITIS [None]
  - OEDEMA [None]
  - FEELING COLD [None]
  - CONVULSION [None]
